FAERS Safety Report 13068036 (Version 1)
Quarter: 2016Q4

REPORT INFORMATION
  Report Type: Spontaneous
  Country: US (occurrence: US)
  Receive Date: 20161227
  Receipt Date: 20161227
  Transmission Date: 20170207
  Serious: No
  Sender: FDA-Public Use
  Company Number: None

PATIENT
  Age: 68 Year
  Sex: Male

DRUGS (2)
  1. TASIGNA [Suspect]
     Active Substance: NILOTINIB
     Indication: PHILADELPHIA CHROMOSOME POSITIVE
     Dosage: 150 MG 2 CAPSULES BY MOUTH EVERY 12 BY MOUTH
     Route: 048
     Dates: start: 20130414
  2. TASIGNA [Suspect]
     Active Substance: NILOTINIB
     Indication: CHRONIC MYELOID LEUKAEMIA
     Dosage: 150 MG 2 CAPSULES BY MOUTH EVERY 12 BY MOUTH
     Route: 048
     Dates: start: 20130414

REACTIONS (5)
  - Abdominal distension [None]
  - Nervousness [None]
  - Tremor [None]
  - Flushing [None]
  - Hyperhidrosis [None]

NARRATIVE: CASE EVENT DATE: 20161227
